FAERS Safety Report 8086178-X (Version None)
Quarter: 2012Q1

REPORT INFORMATION
  Report Type: 
  Country: None (occurrence: None)
  Receive Date: 20120128
  Receipt Date: 20110415
  Transmission Date: 20120608
  Serious: No
  Sender: FDA-Public Use
  Company Number: US-ABBOTT-11P-163-0719576-00

PATIENT
  Age: 67 Year
  Sex: Male

DRUGS (12)
  1. HUMIRA [Suspect]
     Dosage: 80 MG LOADING DOSE
  2. FOLIC ACID [Concomitant]
     Indication: MALABSORPTION
  3. PRAVASTATIN [Concomitant]
     Indication: BLOOD CHOLESTEROL INCREASED
     Dosage: 40 MG DAILY
  4. ASPIRIN [Concomitant]
     Indication: CARDIOVASCULAR EVENT PROPHYLAXIS
  5. GLUCOSAMINE [Concomitant]
     Indication: ARTHRALGIA
  6. HUMIRA [Suspect]
     Indication: COLITIS ULCERATIVE
     Dosage: 160 LOADING DOSE
     Dates: start: 20110407, end: 20110407
  7. PANTOPRAZOLE [Concomitant]
     Indication: GASTROOESOPHAGEAL REFLUX DISEASE
     Dosage: 40 MG DAILY
  8. XALATAN [Concomitant]
     Indication: GLAUCOMA
     Dosage: DAILY
  9. METAMUCIL-2 [Concomitant]
     Indication: DRUG THERAPY
     Dosage: 1 GLASS DAILY
  10. METROGEL [Concomitant]
     Indication: ROSACEA
     Dosage: DAILY
     Route: 061
  11. SULFASALAZINE [Concomitant]
     Indication: COLITIS ULCERATIVE
     Dosage: 3000 MG DAILY
  12. ATENOLOL [Concomitant]
     Indication: HYPERTENSION
     Dosage: 50 MG DAILY

REACTIONS (2)
  - APHONIA [None]
  - OROPHARYNGEAL PAIN [None]
